FAERS Safety Report 4755122-2 (Version None)
Quarter: 2005Q3

REPORT INFORMATION
  Report Type: 
  Country: None (occurrence: None)
  Receive Date: 20050829
  Receipt Date: 20050823
  Transmission Date: 20060218
  Serious: Yes (Hospitalization, Other)
  Sender: FDA-Public Use
  Company Number: GB-JNJFOC-20050804906

PATIENT
  Sex: Female
  Weight: 52 kg

DRUGS (6)
  1. REMICADE [Suspect]
     Indication: RHEUMATOID ARTHRITIS
     Route: 042
  2. BENDROFLUAZIDE [Concomitant]
     Route: 065
  3. SIMVASTATIN [Concomitant]
     Route: 065
  4. PARACETAMOL [Concomitant]
     Route: 065
  5. DISODIUM ETIDRONATE [Concomitant]
     Route: 065
  6. ADCAL [Concomitant]
     Route: 065

REACTIONS (2)
  - GASTRITIS [None]
  - GASTROENTERITIS [None]
